FAERS Safety Report 8605943-0 (Version None)
Quarter: 2012Q3

REPORT INFORMATION
  Report Type: 
  Country: None (occurrence: None)
  Receive Date: 20120820
  Receipt Date: 20120813
  Transmission Date: 20120928
  Serious: Yes (Hospitalization)
  Sender: FDA-Public Use
  Company Number: SE-ROCHE-1097852

PATIENT
  Sex: Male
  Weight: 50 kg

DRUGS (9)
  1. AVASTIN [Suspect]
     Indication: BRAIN NEOPLASM MALIGNANT
     Dosage: DATE OF LAST DOSE PRIOR TO SAE: 23/JUL/2012
     Route: 042
     Dates: start: 20120625
  2. BACTRIM DS [Concomitant]
     Dates: start: 20120630
  3. ALVEDON [Concomitant]
     Dates: start: 20120101
  4. TEMOZOLOMIDE [Suspect]
     Indication: BRAIN NEOPLASM MALIGNANT
     Dates: start: 20120625, end: 20120731
  5. MOVIPREP [Concomitant]
  6. CONCERTA [Concomitant]
     Dates: start: 20120601
  7. OMEPRAZOLE [Concomitant]
  8. AVASTIN [Suspect]
     Dates: start: 20120723
  9. TEMOZOLOMIDE [Suspect]
     Dosage: DOSE MODIFIED

REACTIONS (1)
  - SOMNOLENCE [None]
